FAERS Safety Report 8803676 (Version 1)
Quarter: 2012Q4

REPORT INFORMATION
  Report Type: Report from Study
  Country: US (occurrence: US)
  Receive Date: 20120924
  Receipt Date: 20120924
  Transmission Date: 20130627
  Serious: Yes (Hospitalization)
  Sender: FDA-Public Use
  Company Number: US-JNJFOC-20120907697

PATIENT
  Age: 75 Year
  Sex: Female

DRUGS (2)
  1. REMICADE [Suspect]
     Indication: RHEUMATOID ARTHRITIS
     Route: 042
     Dates: start: 2012
  2. REMICADE [Suspect]
     Indication: RHEUMATOID ARTHRITIS
     Route: 042
     Dates: start: 20120727

REACTIONS (4)
  - Thrombosis [Unknown]
  - Dyspnoea [Recovered/Resolved]
  - Oedema peripheral [Not Recovered/Not Resolved]
  - Swelling face [Recovered/Resolved]
